FAERS Safety Report 10076721 (Version 1)
Quarter: 2014Q2

REPORT INFORMATION
  Report Type: Report from Study
  Country: BR (occurrence: BR)
  Receive Date: 20140414
  Receipt Date: 20140414
  Transmission Date: 20141212
  Serious: Yes (Death, Hospitalization, Other)
  Sender: FDA-Public Use
  Company Number: BR-BAYER-2014-051241

PATIENT
  Age: 65 Year
  Sex: Male
  Weight: 79 kg

DRUGS (8)
  1. NEXAVAR [Suspect]
     Indication: HEPATIC CANCER
     Dosage: 2 DF, BID
     Route: 048
     Dates: start: 201305, end: 201311
  2. NEXAVAR [Suspect]
     Indication: HEPATIC CANCER
     Dosage: 1DF MORNING 2 DF HS
     Route: 048
     Dates: start: 201311, end: 201312
  3. METFORMIN [Concomitant]
     Indication: DIABETES MELLITUS
     Dosage: 1 DF, OM
     Route: 048
     Dates: end: 2013
  4. DIAMICRON [Concomitant]
     Indication: DIABETES MELLITUS
     Dosage: 1 DF, OM
     Route: 048
  5. JANUVIA [Concomitant]
     Indication: DIABETES MELLITUS
     Dosage: 1 DF, OM
     Route: 048
     Dates: start: 2013
  6. ARADOIS [Concomitant]
     Indication: HYPERTENSION
     Dosage: 2 DF, QD
     Route: 048
     Dates: start: 2011, end: 2013
  7. ARADOIS [Concomitant]
     Indication: HYPERTENSION
     Dosage: 1 DF, QD
     Route: 048
     Dates: start: 2013
  8. OMEPRAZOLE [Concomitant]
     Indication: ABDOMINAL DISCOMFORT
     Dosage: 1 DF, UNK
     Route: 048
     Dates: start: 201305

REACTIONS (7)
  - Multi-organ failure [Fatal]
  - Diarrhoea [Recovered/Resolved]
  - Decreased appetite [Not Recovered/Not Resolved]
  - Ascites [Not Recovered/Not Resolved]
  - Pollakiuria [Not Recovered/Not Resolved]
  - Gastrointestinal motility disorder [Not Recovered/Not Resolved]
  - Diarrhoea [Not Recovered/Not Resolved]
